FAERS Safety Report 13025682 (Version 1)
Quarter: 2016Q4

REPORT INFORMATION
  Report Type: Other
  Country: CA (occurrence: CA)
  Receive Date: 20161214
  Receipt Date: 20161214
  Transmission Date: 20170207
  Serious: Yes (Other)
  Sender: FDA-Public Use
  Company Number: CA-APOTEX-2016AP015374

PATIENT

DRUGS (4)
  1. BUPIVACAINE. [Suspect]
     Active Substance: BUPIVACAINE
     Indication: CANCER PAIN
     Dosage: 13.1 MG, QD
     Route: 037
  2. APO-BACLOFEN [Suspect]
     Active Substance: BACLOFEN
     Indication: CANCER PAIN
     Dosage: 34.667 ?G, QD
     Route: 037
  3. APO-FENTANYL MATRIX [Suspect]
     Active Substance: FENTANYL
     Indication: CANCER PAIN
     Dosage: 2600.1 ?G, QD
     Route: 037
  4. APO-CLONIDINE [Suspect]
     Active Substance: CLONIDINE HYDROCHLORIDE
     Indication: CANCER PAIN
     Dosage: 138.67 ?G, QD
     Route: 037

REACTIONS (1)
  - Infection [Unknown]
